FAERS Safety Report 5305966-3 (Version None)
Quarter: 2007Q2

REPORT INFORMATION
  Report Type: 
  Country: None (occurrence: None)
  Receive Date: 20070424
  Receipt Date: 20070416
  Transmission Date: 20071010
  Serious: Yes (Hospitalization, Disabling, Other)
  Sender: FDA-Public Use
  Company Number: US-MERCK-0604USA02026

PATIENT
  Age: 55 Year
  Sex: Female

DRUGS (8)
  1. PROVERA [Concomitant]
     Route: 065
  2. GASTRODIA [Concomitant]
     Route: 065
  3. BEXTRA [Concomitant]
     Route: 065
  4. PROCRIT [Concomitant]
     Route: 065
  5. NEXIUM [Concomitant]
     Route: 065
  6. FOSAMAX [Suspect]
     Indication: OSTEOPENIA
     Route: 048
     Dates: start: 19970101, end: 20000101
  7. FOSAMAX [Suspect]
     Route: 048
     Dates: start: 20000101, end: 20050401
  8. UROCIT-K [Concomitant]
     Indication: ELECTROLYTE SUBSTITUTION THERAPY
     Route: 065
     Dates: start: 19980601

REACTIONS (11)
  - ANAEMIA [None]
  - BLOOD CHOLESTEROL INCREASED [None]
  - CARTILAGE INJURY [None]
  - NAUSEA [None]
  - OSTEOMYELITIS CHRONIC [None]
  - OSTEONECROSIS [None]
  - RENAL TUBULAR ACIDOSIS [None]
  - SJOGREN'S SYNDROME [None]
  - TOOTH EXTRACTION [None]
  - TOOTH INFECTION [None]
  - VISUAL ACUITY REDUCED [None]
